FAERS Safety Report 10082956 (Version 1)
Quarter: 2014Q2

REPORT INFORMATION
  Report Type: Spontaneous
  Country: US (occurrence: US)
  Receive Date: 20140417
  Receipt Date: 20140417
  Transmission Date: 20141212
  Serious: Yes (Death, Hospitalization)
  Sender: FDA-Public Use
  Company Number: US-ROCHE-1383958

PATIENT
  Age: 81 Year
  Sex: Male

DRUGS (3)
  1. TNKASE [Suspect]
     Indication: ACUTE MYOCARDIAL INFARCTION
     Route: 040
  2. HEPARIN [Concomitant]
     Dosage: 1000 UNITS PER HOUR
     Route: 065
  3. PLAVIX [Concomitant]
     Dosage: LOADING DOSE
     Route: 065

REACTIONS (3)
  - Death [Fatal]
  - Cerebral haemorrhage [Unknown]
  - Hypoaesthesia [Unknown]
